FAERS Safety Report 5659581-2 (Version None)
Quarter: 2008Q1

REPORT INFORMATION
  Report Type: 
  Country: None (occurrence: None)
  Receive Date: 20080311
  Receipt Date: 20080229
  Transmission Date: 20080703
  Serious: Yes (Life-Threatening, Other)
  Sender: FDA-Public Use
  Company Number: US-JNJFOC-20080300261

PATIENT
  Sex: Female

DRUGS (15)
  1. REMICADE [Suspect]
     Indication: RHEUMATOID ARTHRITIS
     Dosage: TOTAL OF 18 INFUSIONS
     Route: 042
  2. METHOTREXATE [Concomitant]
     Indication: RHEUMATOID ARTHRITIS
  3. FOLIC ACID [Concomitant]
     Indication: NUTRITIONAL SUPPORT
  4. FUROSEMIDE [Concomitant]
  5. HYDROCODONE [Concomitant]
     Indication: PAIN
  6. ALBUTEROL [Concomitant]
  7. SPIRIVA [Concomitant]
  8. ZOCOR [Concomitant]
  9. TOPROL [Concomitant]
  10. PULMACORT [Concomitant]
  11. COUMADIN [Concomitant]
  12. MAGNESIUM [Concomitant]
  13. CALCIUM [Concomitant]
  14. FOSAMAX [Concomitant]
  15. ATACAND [Concomitant]

REACTIONS (1)
  - LYMPHOMA [None]
